FAERS Safety Report 14573557 (Version 1)
Quarter: 2018Q1

REPORT INFORMATION
  Report Type: Spontaneous
  Country: US (occurrence: US)
  Receive Date: 20180224
  Receipt Date: 20180224
  Transmission Date: 20180509
  Serious: No
  Sender: FDA-Public Use
  Company Number: None

PATIENT
  Age: 68 Year
  Sex: Female
  Weight: 90 kg

DRUGS (12)
  1. HYDROTHORIZIDE [Concomitant]
  2. COQ10 [Concomitant]
     Active Substance: UBIDECARENONE
  3. CALCIUM [Concomitant]
     Active Substance: CALCIUM
  4. LOPRESSOR [Concomitant]
     Active Substance: METOPROLOL TARTRATE
  5. BRILINTA [Concomitant]
     Active Substance: TICAGRELOR
  6. WOMEN^S ONE A DAY [Concomitant]
     Active Substance: VITAMINS
  7. CONTRAVE [Suspect]
     Active Substance: BUPROPION HYDROCHLORIDE\NALTREXONE HYDROCHLORIDE
     Indication: WEIGHT INCREASED
     Dosage: ?          QUANTITY:1 TABLET(S);?
     Route: 048
     Dates: start: 20180119, end: 20180212
  8. CLARITIN [Concomitant]
     Active Substance: LORATADINE
  9. AVAPRO [Concomitant]
     Active Substance: IRBESARTAN
  10. BABY ASPIRIN [Concomitant]
     Active Substance: ASPIRIN
  11. AZELASTINE HYDROCORTISONE [Concomitant]
  12. MAGNESIUM [Concomitant]
     Active Substance: MAGNESIUM

REACTIONS (4)
  - Nausea [None]
  - Temporomandibular joint syndrome [None]
  - Tinnitus [None]
  - Dizziness [None]
